FAERS Safety Report 9614434 (Version 1)
Quarter: 2013Q4

REPORT INFORMATION
  Report Type: Spontaneous
  Country: US (occurrence: US)
  Receive Date: 20131011
  Receipt Date: 20131011
  Transmission Date: 20140711
  Serious: Yes (Other)
  Sender: FDA-Public Use
  Company Number: US-SA-2013SA098631

PATIENT
  Age: 69 Year
  Sex: Male

DRUGS (3)
  1. LANTUS [Suspect]
     Indication: TYPE 2 DIABETES MELLITUS
     Route: 058
     Dates: start: 2003, end: 2005
  2. LANTUS SOLOSTAR [Suspect]
     Indication: TYPE 2 DIABETES MELLITUS
     Dosage: DOSE:26 UNIT(S)
     Route: 058
     Dates: start: 2005
  3. METFORMIN [Concomitant]
     Route: 065

REACTIONS (5)
  - Cardiac disorder [Unknown]
  - Aortic stenosis [Unknown]
  - Renal disorder [Unknown]
  - Blood urine present [Unknown]
  - Blood glucose decreased [Unknown]
